FAERS Safety Report 18152638 (Version 1)
Quarter: 2020Q3

REPORT INFORMATION
  Report Type: Report from Study
  Country: None (occurrence: US)
  Receive Date: 20200814
  Receipt Date: 20200814
  Transmission Date: 20201103
  Serious: Yes (Other)
  Sender: FDA-Public Use
  Company Number: US-ABBVIE-20K-163-3526509-00

PATIENT
  Sex: Female

DRUGS (1)
  1. IMBRUVICA [Suspect]
     Active Substance: IBRUTINIB
     Indication: NON-HODGKIN^S LYMPHOMA
     Route: 048
     Dates: start: 20200114

REACTIONS (5)
  - Macular degeneration [Unknown]
  - Hodgkin^s disease [Unknown]
  - White blood cell count increased [Recovering/Resolving]
  - Drug ineffective [Unknown]
  - Pain in extremity [Unknown]
